FAERS Safety Report 6768506-8 (Version None)
Quarter: 2010Q2

REPORT INFORMATION
  Report Type: 
  Country: None (occurrence: None)
  Receive Date: 20100614
  Receipt Date: 20100602
  Transmission Date: 20101027
  Serious: Yes (Other)
  Sender: FDA-Public Use
  Company Number: US-PFIZER INC-2010070074

PATIENT
  Sex: Female
  Weight: 64.399 kg

DRUGS (5)
  1. CHANTIX [Suspect]
     Indication: SMOKING CESSATION THERAPY
     Dosage: 0.5 MG, 2X/DAY
     Route: 048
     Dates: start: 20100524, end: 20100530
  2. ZOLOFT [Concomitant]
     Dosage: 50 MG, DAILY
  3. PRILOSEC [Concomitant]
     Dosage: UNK
  4. KLONOPIN [Concomitant]
     Dosage: UNK
  5. ESTROGENS ESTERFIED/METHYLTESTOSTERONE [Concomitant]
     Indication: HYSTERECTOMY
     Dosage: UNK

REACTIONS (7)
  - AGITATION [None]
  - DEPRESSION [None]
  - DYSPEPSIA [None]
  - HEADACHE [None]
  - NAUSEA [None]
  - PERSONALITY CHANGE [None]
  - SUICIDAL IDEATION [None]
